FAERS Safety Report 16417499 (Version 1)
Quarter: 2019Q2

REPORT INFORMATION
  Report Type: Spontaneous
  Country: ES (occurrence: ES)
  Receive Date: 20190611
  Receipt Date: 20190611
  Transmission Date: 20190711
  Serious: Yes (Hospitalization)
  Sender: FDA-Public Use
  Company Number: ES-MYLANLABS-2019M1054598

PATIENT
  Age: 36 Day
  Sex: Female
  Weight: 1 kg

DRUGS (2)
  1. FUROSEMIDE. [Suspect]
     Active Substance: FUROSEMIDE
     Indication: NEONATAL RESPIRATORY DISTRESS SYNDROME
     Dosage: 2MG/KG EN BOLO
     Route: 048
     Dates: start: 20180221, end: 20180226
  2. IBUPROFENO [Concomitant]
     Active Substance: IBUPROFEN
     Indication: PATENT DUCTUS ARTERIOSUS
     Dosage: 10 MG / KG DOSIS 1, 5 MG/KG DIA DOSIS 2 Y 3
     Route: 048
     Dates: start: 20180208, end: 20180210

REACTIONS (2)
  - Nephrocalcinosis [Recovering/Resolving]
  - Hyponatraemia [Recovered/Resolved]

NARRATIVE: CASE EVENT DATE: 20180224
